FAERS Safety Report 19216479 (Version 1)
Quarter: 2021Q2

REPORT INFORMATION
  Report Type: Spontaneous
  Country: US (occurrence: US)
  Receive Date: 20210505
  Receipt Date: 20210505
  Transmission Date: 20210717
  Serious: No
  Sender: FDA-Public Use
  Company Number: US-009507513-2104USA002504

PATIENT
  Age: 67 Year
  Sex: Male

DRUGS (2)
  1. PREVYMIS [Suspect]
     Active Substance: LETERMOVIR
     Indication: ANTIVIRAL PROPHYLAXIS
     Route: 048
  2. NOXAFIL [Suspect]
     Active Substance: POSACONAZOLE
     Indication: ASPERGILLUS INFECTION
     Route: 048

REACTIONS (1)
  - Product use in unapproved indication [Unknown]
